FAERS Safety Report 16014517 (Version 4)
Quarter: 2022Q1

REPORT INFORMATION
  Report Type: Report from Study
  Country: GB (occurrence: GB)
  Receive Date: 20190227
  Receipt Date: 20220202
  Transmission Date: 20220423
  Serious: Yes (Hospitalization, Other)
  Sender: FDA-Public Use
  Company Number: GB-LEO PHARMA-317004

PATIENT
  Age: 83 Year
  Sex: Female

DRUGS (17)
  1. BRODALUMAB [Suspect]
     Active Substance: BRODALUMAB
     Indication: Psoriasis
     Dosage: 210 MG IN WEEK 0,1, 2  WEEKS
     Route: 058
     Dates: start: 20190305, end: 2019
  2. BRODALUMAB [Suspect]
     Active Substance: BRODALUMAB
     Dosage: THEN 2 WEEKLY
     Route: 058
     Dates: start: 2019, end: 2019
  3. BRODALUMAB [Suspect]
     Active Substance: BRODALUMAB
     Dosage: WEEKLY DOSAGE SCHEDULE
     Route: 058
     Dates: start: 20190625, end: 2019
  4. BRODALUMAB [Suspect]
     Active Substance: BRODALUMAB
     Dosage: DOSE WAS CHANGED TO EVERY 2 WEEKS ON AN UNKNOWN DATE (1 IN 2 WK)
     Route: 058
     Dates: start: 2019
  5. CYCLOSPORINE [Concomitant]
     Active Substance: CYCLOSPORINE
     Indication: Psoriasis
     Dosage: 50 MG ALTERNATE DAYS
     Route: 048
     Dates: start: 20110214
  6. AMLODIPINE [Concomitant]
     Active Substance: AMLODIPINE BESYLATE
     Indication: Hypertension
     Route: 048
     Dates: start: 20110327
  7. OXYCODONE [Concomitant]
     Active Substance: OXYCODONE
     Indication: Product used for unknown indication
     Route: 048
     Dates: start: 20190212
  8. VITAMIN B12 [Concomitant]
     Active Substance: CYANOCOBALAMIN
     Indication: Product used for unknown indication
     Dates: start: 20060913
  9. CETIRIZINE [Concomitant]
     Active Substance: CETIRIZINE HYDROCHLORIDE
     Indication: Product used for unknown indication
     Dates: start: 20160906
  10. ACETAMINOPHEN [Concomitant]
     Active Substance: ACETAMINOPHEN
     Indication: Product used for unknown indication
     Dates: start: 20170201
  11. COCODAMOL [Concomitant]
     Active Substance: ACETAMINOPHEN\CODEINE PHOSPHATE
     Indication: Product used for unknown indication
     Dates: start: 20170729
  12. FOLIC ACID [Concomitant]
     Active Substance: FOLIC ACID
     Indication: Product used for unknown indication
     Dates: start: 20171107
  13. FEXOFENADINE [Concomitant]
     Active Substance: FEXOFENADINE HYDROCHLORIDE
     Indication: Product used for unknown indication
     Dates: start: 20171219
  14. ALFACALCIDOL [Concomitant]
     Active Substance: ALFACALCIDOL
     Indication: Product used for unknown indication
     Dates: start: 20180220
  15. SODIUM BICARBONATE [Concomitant]
     Active Substance: SODIUM BICARBONATE
     Indication: Product used for unknown indication
     Dates: start: 20180220
  16. ACITRETIN [Concomitant]
     Active Substance: ACITRETIN
     Indication: Product used for unknown indication
     Dates: start: 20180326
  17. PREDNISOLONE [Concomitant]
     Active Substance: PREDNISOLONE
     Indication: Product used for unknown indication
     Dates: start: 20190212

REACTIONS (22)
  - Pustular psoriasis [Not Recovered/Not Resolved]
  - Erythrodermic psoriasis [Not Recovered/Not Resolved]
  - Psoriasis [Not Recovered/Not Resolved]
  - Psoriasis [Not Recovered/Not Resolved]
  - Peripheral swelling [Not Recovered/Not Resolved]
  - Hypoalbuminaemia [Not Recovered/Not Resolved]
  - Urinary tract infection [Unknown]
  - Cellulitis [Unknown]
  - Dyspnoea [Recovered/Resolved]
  - Malaise [Recovered/Resolved]
  - Gingival pain [Unknown]
  - Back pain [Recovered/Resolved]
  - Vomiting [Recovered/Resolved]
  - Malaise [Recovered/Resolved]
  - Vomiting [Recovered/Resolved]
  - Spinal pain [Recovering/Resolving]
  - Psoriasis [Not Recovered/Not Resolved]
  - Psoriasis [Unknown]
  - Psoriasis [Recovered/Resolved]
  - Nausea [Recovered/Resolved]
  - Injection site pain [Recovering/Resolving]
  - Inappropriate schedule of product administration [Unknown]

NARRATIVE: CASE EVENT DATE: 20190312
